FAERS Safety Report 9192935 (Version 1)
Quarter: 2013Q1

REPORT INFORMATION
  Report Type: Spontaneous
  Country: BR (occurrence: BR)
  Receive Date: 20130327
  Receipt Date: 20130327
  Transmission Date: 20140127
  Serious: Yes (Other)
  Sender: FDA-Public Use
  Company Number: PHHY2013BR028425

PATIENT
  Age: 57 Year
  Sex: Female

DRUGS (2)
  1. GALVUS MET [Suspect]
     Indication: TYPE 2 DIABETES MELLITUS
     Dosage: 2 DF (METFORMIN 850MG AND VILDAGLIPTIN 50MG) DAILY
     Route: 048
  2. METFORMIN [Suspect]
     Indication: DIABETES MELLITUS
     Dosage: UNK UKN, UNK

REACTIONS (3)
  - General physical health deterioration [Unknown]
  - Hepatic enzyme abnormal [Recovered/Resolved]
  - Blood glucose increased [Unknown]
